FAERS Safety Report 8253631-5 (Version None)
Quarter: 2012Q2

REPORT INFORMATION
  Report Type: 
  Country: None (occurrence: None)
  Receive Date: 20120402
  Receipt Date: 20120308
  Transmission Date: 20120825
  Serious: No
  Sender: FDA-Public Use
  Company Number: US-AMGEN-USASP2012015292

PATIENT
  Sex: Female

DRUGS (1)
  1. ENBREL [Suspect]
     Indication: RHEUMATOID ARTHRITIS
     Dosage: 25 MG, 2 TIMES/WK
     Dates: start: 20110401

REACTIONS (7)
  - JOINT CREPITATION [None]
  - MUSCULOSKELETAL CHEST PAIN [None]
  - PAIN [None]
  - DYSPNOEA [None]
  - THERAPEUTIC RESPONSE DECREASED [None]
  - RASH PAPULAR [None]
  - BURNING SENSATION [None]
